FAERS Safety Report 7144574-9 (Version None)
Quarter: 2010Q4

REPORT INFORMATION
  Report Type: 
  Country: None (occurrence: None)
  Receive Date: 20101208
  Receipt Date: 20101202
  Transmission Date: 20110411
  Serious: Yes (Hospitalization)
  Sender: FDA-Public Use
  Company Number: CH-BAYER-2010-000149

PATIENT

DRUGS (2)
  1. ASPIRIN [Suspect]
     Dosage: DAILY DOSE 100 MG
     Route: 048
     Dates: end: 20101029
  2. PLAVIX [Suspect]
     Dosage: 75 MG
     Route: 048
     Dates: end: 20101029

REACTIONS (2)
  - HEADACHE [None]
  - INTRACRANIAL HAEMATOMA [None]
